FAERS Safety Report 7211101-7 (Version None)
Quarter: 2011Q1

REPORT INFORMATION
  Report Type: 
  Country: None (occurrence: None)
  Receive Date: 20110105
  Receipt Date: 20101227
  Transmission Date: 20110831
  Serious: Yes (Hospitalization)
  Sender: FDA-Public Use
  Company Number: US-ASTRAZENECA-2010SE60851

PATIENT
  Age: 77 Year
  Sex: Female

DRUGS (17)
  1. NEBUTONE [Concomitant]
     Indication: ARTHRITIS
  2. PROTONIX [Concomitant]
     Indication: ANTICOAGULANT THERAPY
  3. CO-Q-10 [Concomitant]
  4. VITAMIN B [Concomitant]
  5. METFORMIN [Concomitant]
  6. SYNTHROID [Concomitant]
     Indication: HYPOTHYROIDISM
  7. AVAPRO [Concomitant]
  8. VICODIN [Concomitant]
     Indication: PAIN
  9. CALCIUM AND VITAMIN D [Concomitant]
  10. CRESTOR [Suspect]
     Indication: BLOOD CHOLESTEROL INCREASED
     Route: 048
     Dates: start: 20070101, end: 20101001
  11. GLIMEPIRIDE [Concomitant]
     Indication: DIABETES MELLITUS
  12. QUINAPRIL [Concomitant]
     Indication: BLOOD PRESSURE
  13. METOPROLOL SUCCINATE [Concomitant]
     Indication: BLOOD PRESSURE
  14. GLUCOSAMINE CHONDROITIN [Concomitant]
  15. CHROMIUM CHLORIDE [Concomitant]
  16. EYE DROPS [Concomitant]
     Indication: GLAUCOMA
  17. CIPRO [Concomitant]
     Indication: ANTIBIOTIC THERAPY

REACTIONS (6)
  - DRUG DOSE OMISSION [None]
  - ASTHENIA [None]
  - WRIST FRACTURE [None]
  - PAIN IN EXTREMITY [None]
  - FALL [None]
  - ARTHRITIS [None]
